FAERS Safety Report 4695652-5 (Version None)
Quarter: 2005Q2

REPORT INFORMATION
  Report Type: 
  Country: None (occurrence: None)
  Receive Date: 20050617
  Receipt Date: 20050617
  Transmission Date: 20051028
  Serious: Yes (Other)
  Sender: FDA-Public Use
  Company Number: None

PATIENT
  Age: 48 Year
  Sex: Male
  Weight: 103.4 kg

DRUGS (5)
  1. FOSINOPRIL SODIUM [Suspect]
  2. VALSARTAN [Concomitant]
  3. CODEINE 10/GUAIFENESIN [Concomitant]
  4. SILDENAFIL CITRATE [Concomitant]
  5. METFORMIN HCL [Concomitant]

REACTIONS (1)
  - COUGH [None]
